FAERS Safety Report 4726488-4 (Version None)
Quarter: 2005Q3

REPORT INFORMATION
  Report Type: 
  Country: None (occurrence: None)
  Receive Date: 20050726
  Receipt Date: 20050713
  Transmission Date: 20060218
  Serious: Yes (Other)
  Sender: FDA-Public Use
  Company Number: S05-CAN-02435-02

PATIENT
  Age: 1 Day
  Sex: Female

DRUGS (3)
  1. CELEXA [Suspect]
  2. BENDECTIN [Concomitant]
  3. LABETALOL [Concomitant]

REACTIONS (4)
  - CRYING [None]
  - DEPERSONALISATION [None]
  - DRUG EXPOSURE DURING PREGNANCY [None]
  - NEONATAL DISORDER [None]
